FAERS Safety Report 4679976-3 (Version None)
Quarter: 2005Q2

REPORT INFORMATION
  Report Type: 
  Country: None (occurrence: None)
  Receive Date: 20050531
  Receipt Date: 20050519
  Transmission Date: 20051028
  Serious: No
  Sender: FDA-Public Use
  Company Number: B0381636A

PATIENT
  Age: 21 Year
  Sex: Male

DRUGS (2)
  1. ZYBAN [Suspect]
     Dosage: 150 MG/TWICE PER DAY/ ORAL
     Route: 048
     Dates: start: 20050414, end: 20050502
  2. CANNABIS [Concomitant]

REACTIONS (4)
  - DERMATITIS ALLERGIC [None]
  - DRUG ABUSER [None]
  - DRUG ADMINISTRATION ERROR [None]
  - JOINT SWELLING [None]
